FAERS Safety Report 8811684 (Version 1)
Quarter: 2012Q4

REPORT INFORMATION
  Report Type: Spontaneous
  Country: US (occurrence: None)
  Receive Date: 20120925
  Receipt Date: 20120925
  Transmission Date: 20130627
  Serious: Yes (Other)
  Sender: FDA-Public Use
  Company Number: None

PATIENT
  Age: 41 Year
  Sex: Female
  Weight: 57.15 kg

DRUGS (1)
  1. LEVULAN KERASTICK [Suspect]
     Indication: SKIN CANCER
     Dosage: 17 minutes blue light once
     Dates: start: 20120917, end: 20120917

REACTIONS (7)
  - Erythema [None]
  - Burning sensation [None]
  - Pruritus [None]
  - Facial pain [None]
  - Chest pain [None]
  - Insomnia [None]
  - Back pain [None]
